FAERS Safety Report 7179013-5 (Version None)
Quarter: 2010Q4

REPORT INFORMATION
  Report Type: 
  Country: None (occurrence: None)
  Receive Date: 20101221
  Receipt Date: 20101215
  Transmission Date: 20110411
  Serious: Yes (Death, Other)
  Sender: FDA-Public Use
  Company Number: PHHY2010JP85153

PATIENT
  Sex: Female

DRUGS (2)
  1. ZOLEDRONATE T29581+ [Suspect]
     Indication: METASTASES TO BONE
     Dosage: 4MG (SINGLE DOSE)
     Route: 041
     Dates: start: 20080207
  2. VASOLATOR [Concomitant]
     Indication: HYPERTENSION
     Dosage: UNK
     Route: 062
     Dates: start: 20080204

REACTIONS (3)
  - DEATH [None]
  - PNEUMONIA [None]
  - TRACHEO-OESOPHAGEAL FISTULA [None]
